FAERS Safety Report 7915313-6 (Version None)
Quarter: 2011Q4

REPORT INFORMATION
  Report Type: 
  Country: None (occurrence: None)
  Receive Date: 20111115
  Receipt Date: 20111113
  Transmission Date: 20120403
  Serious: Yes (Death)
  Sender: FDA-Public Use
  Company Number: SE-BIOMARINP-002096

PATIENT
  Sex: Female
  Weight: 14.5 kg

DRUGS (5)
  1. ACETAMINOPHEN [Concomitant]
  2. ATROPINE [Concomitant]
  3. OXYGEN [Concomitant]
  4. NAGLAZYME [Suspect]
     Indication: MUCOPOLYSACCHARIDOSIS VI
     Route: 042
     Dates: start: 20080801
  5. SOLU-CORTEF [Concomitant]

REACTIONS (2)
  - HYPERSENSITIVITY [None]
  - PRODUCT QUALITY ISSUE [None]
